FAERS Safety Report 25712848 (Version 1)
Quarter: 2025Q3

REPORT INFORMATION
  Report Type: Spontaneous
  Country: JP (occurrence: JP)
  Receive Date: 20250821
  Receipt Date: 20250821
  Transmission Date: 20251020
  Serious: Yes (Hospitalization, Other)
  Sender: TAKEDA
  Company Number: JP-TAKEDA-2025TJP008300

PATIENT
  Age: 65 Year
  Sex: Female
  Weight: 58.6 kg

DRUGS (15)
  1. FRUZAQLA [Suspect]
     Active Substance: FRUQUINTINIB
     Indication: Colon cancer metastatic
     Dosage: 5 MILLIGRAM, QD
     Dates: start: 20250513
  2. FRUZAQLA [Suspect]
     Active Substance: FRUQUINTINIB
  3. IVABRADINE HYDROCHLORIDE [Concomitant]
     Active Substance: IVABRADINE HYDROCHLORIDE
  4. SPIRONOLACTONE [Concomitant]
     Active Substance: SPIRONOLACTONE
  5. CARVEDILOL [Concomitant]
     Active Substance: CARVEDILOL
  6. DAPAGLIFLOZIN [Concomitant]
     Active Substance: DAPAGLIFLOZIN
  7. MAGNESIUM OXIDE [Concomitant]
     Active Substance: MAGNESIUM OXIDE
  8. EDOXABAN TOSYLATE [Concomitant]
     Active Substance: EDOXABAN TOSYLATE
  9. ENTRESTO [Concomitant]
     Active Substance: SACUBITRIL\VALSARTAN
  10. MIYA-BM [Concomitant]
     Active Substance: CLOSTRIDIUM BUTYRICUM SPORES STRAIN M-55
  11. LOXOPROFEN SODIUM [Concomitant]
     Active Substance: LOXOPROFEN SODIUM
  12. REBAMIPIDE [Concomitant]
     Active Substance: REBAMIPIDE
  13. PYRIDOXAL [Concomitant]
     Active Substance: PYRIDOXAL
  14. LINAGLIPTIN [Concomitant]
     Active Substance: LINAGLIPTIN
  15. TRAMADOL HYDROCHLORIDE [Concomitant]
     Active Substance: TRAMADOL HYDROCHLORIDE

REACTIONS (1)
  - Duodenal ulcer perforation [Recovering/Resolving]

NARRATIVE: CASE EVENT DATE: 20250520
